FAERS Safety Report 9355404 (Version 1)
Quarter: 2013Q2

REPORT INFORMATION
  Report Type: Spontaneous
  Country: GB (occurrence: GB)
  Receive Date: 20130619
  Receipt Date: 20130619
  Transmission Date: 20140414
  Serious: Yes (Other)
  Sender: FDA-Public Use
  Company Number: GB-JNJFOC-20130609288

PATIENT
  Age: 41 Year
  Sex: Female
  Weight: 46.4 kg

DRUGS (2)
  1. NICORETTE PATCH 15 MG [Suspect]
     Route: 061
  2. NICORETTE PATCH 15 MG [Suspect]
     Indication: SMOKING CESSATION THERAPY
     Route: 061
     Dates: start: 20130524, end: 20130525

REACTIONS (3)
  - Blister [Recovering/Resolving]
  - Skin burning sensation [Recovering/Resolving]
  - Pain [Unknown]
